FAERS Safety Report 13211513 (Version 1)
Quarter: 2017Q1

REPORT INFORMATION
  Report Type: Spontaneous
  Country: JP (occurrence: JP)
  Receive Date: 20170210
  Receipt Date: 20170210
  Transmission Date: 20170428
  Serious: Yes (Hospitalization, Other)
  Sender: FDA-Public Use
  Company Number: JP-GLAXOSMITHKLINE-JP2017JPN016314

PATIENT
  Age: 24 Year
  Sex: Male

DRUGS (2)
  1. VENTOLINE [Suspect]
     Active Substance: ALBUTEROL
     Indication: ASTHMA
     Dosage: UNK
     Route: 055
  2. VENTOLINE [Suspect]
     Active Substance: ALBUTEROL
     Dosage: 25 ML, SINGLE
     Route: 048

REACTIONS (9)
  - Palpitations [Recovered/Resolved]
  - Toxicity to various agents [Recovering/Resolving]
  - Suicide attempt [Unknown]
  - Tachycardia [Recovering/Resolving]
  - Restlessness [Recovering/Resolving]
  - Intentional product use issue [Unknown]
  - Tremor [Recovered/Resolved]
  - Intentional overdose [Unknown]
  - Hypokalaemia [Recovering/Resolving]
